FAERS Safety Report 8793131 (Version 2)
Quarter: 2012Q4

REPORT INFORMATION
  Report Type: 
  Country: US (occurrence: US)
  Receive Date: 20120917
  Receipt Date: 20121026
  Transmission Date: 20130627
  Serious: No
  Sender: FDA-Public Use
  Company Number: US-PFIZER INC-2012227847

PATIENT
  Age: 52 Year
  Sex: Female
  Weight: 81.63 kg

DRUGS (3)
  1. DEPO-MEDROL [Suspect]
     Indication: INTERVERTEBRAL DISC PROTRUSION
     Dosage: UNK
     Dates: start: 2004, end: 20120906
  2. DEPO-MEDROL [Suspect]
     Indication: SPONDYLITIS
     Dosage: UNK
     Dates: start: 2004, end: 20120206
  3. ARMOUR THYROID [Concomitant]
     Indication: THYROID DISORDER
     Dosage: 90 mg, daily

REACTIONS (6)
  - Acid base balance abnormal [Recovered/Resolved]
  - Hunger [Recovered/Resolved]
  - Weight increased [Recovering/Resolving]
  - Abdominal distension [Recovered/Resolved]
  - Chest pain [Recovered/Resolved]
  - Reaction to preservatives [Unknown]
